FAERS Safety Report 9570085 (Version 2)
Quarter: 2013Q4

REPORT INFORMATION
  Report Type: Spontaneous
  Country: US (occurrence: US)
  Receive Date: 20130930
  Receipt Date: 20131106
  Transmission Date: 20140711
  Serious: No
  Sender: FDA-Public Use
  Company Number: US-AMGEN-USASP2013065039

PATIENT
  Age: 37 Year
  Sex: Female
  Weight: 110.2 kg

DRUGS (4)
  1. ENBREL [Suspect]
     Indication: RHEUMATOID ARTHRITIS
     Dosage: 50 MG, QWK
     Route: 058
     Dates: start: 201212
  2. EFFEXOR [Concomitant]
     Dosage: UNK
     Route: 048
  3. LORAZEPAM [Concomitant]
     Dosage: UNK, PRN (AS NECESSARY)
     Route: 048
  4. HYOSCYAMINE [Concomitant]
     Dosage: UNK, PRN (AS NECESSARY)
     Route: 048

REACTIONS (3)
  - Pain [Not Recovered/Not Resolved]
  - Injection site reaction [Recovered/Resolved]
  - Injection site pain [Not Recovered/Not Resolved]
